FAERS Safety Report 11806359 (Version 1)
Quarter: 2015Q4

REPORT INFORMATION
  Report Type: Spontaneous
  Country: US (occurrence: US)
  Receive Date: 20151207
  Receipt Date: 20151207
  Transmission Date: 20160305
  Serious: Yes (Other)
  Sender: FDA-Public Use
  Company Number: US-FRESENIUS KABI-FK201506261

PATIENT
  Age: 37 Year
  Sex: Female

DRUGS (1)
  1. PROGESTERONE INJECTION USP [Suspect]
     Active Substance: PROGESTERONE
     Indication: INFERTILITY
     Route: 030

REACTIONS (3)
  - Leukocytosis [Recovered/Resolved]
  - Eosinophilic pneumonia acute [Recovered/Resolved]
  - Off label use [Recovered/Resolved]
